FAERS Safety Report 10010687 (Version 1)
Quarter: 2014Q1

REPORT INFORMATION
  Report Type: Report from Study
  Country: CN (occurrence: CN)
  Receive Date: 20140314
  Receipt Date: 20140314
  Transmission Date: 20141002
  Serious: Yes (Other)
  Sender: FDA-Public Use
  Company Number: CN-ROCHE-1365702

PATIENT
  Age: 54 Year
  Sex: Female

DRUGS (3)
  1. PEGASYS [Suspect]
     Indication: HEPATITIS C
     Route: 058
     Dates: start: 201208
  2. PEGASYS [Suspect]
     Route: 058
  3. PEGASYS [Suspect]
     Route: 058
     Dates: end: 201306

REACTIONS (3)
  - White blood cell count decreased [Unknown]
  - Asthenia [Unknown]
  - Dizziness [Unknown]
